FAERS Safety Report 5400363-4 (Version None)
Quarter: 2007Q3

REPORT INFORMATION
  Report Type: 
  Country: None (occurrence: None)
  Receive Date: 20070730
  Receipt Date: 20070723
  Transmission Date: 20080115
  Serious: Yes (Other)
  Sender: FDA-Public Use
  Company Number: B0468297A

PATIENT
  Age: 66 Year
  Sex: Female
  Weight: 58 kg

DRUGS (7)
  1. PAXIL [Suspect]
     Indication: DEPRESSION
     Dosage: 10MG PER DAY
     Route: 048
     Dates: start: 20030606, end: 20070419
  2. METILDIGOXIN [Concomitant]
     Dosage: .1MG PER DAY
     Route: 048
  3. ASPIRIN [Concomitant]
     Dosage: 100MG PER DAY
     Route: 048
  4. AMARYL [Concomitant]
     Dosage: 2MG PER DAY
     Route: 048
  5. VASOLAN [Concomitant]
     Indication: DRUG USE FOR UNKNOWN INDICATION
     Route: 048
  6. PRAVASTATIN [Concomitant]
     Dosage: 10MG PER DAY
     Route: 048
  7. MEILAX [Concomitant]
     Indication: ANXIETY
     Dosage: 1MG PER DAY
     Route: 048
     Dates: start: 20030606

REACTIONS (3)
  - EXTRAPYRAMIDAL DISORDER [None]
  - PARKINSONIAN GAIT [None]
  - WRIST FRACTURE [None]
